FAERS Safety Report 8789626 (Version 1)
Quarter: 2012Q4

REPORT INFORMATION
  Report Type: Spontaneous
  Country: US (occurrence: None)
  Receive Date: 20120905
  Receipt Date: 20120905
  Transmission Date: 20130627
  Serious: Yes (Life-Threatening, Hospitalization, Other)
  Sender: FDA-Public Use
  Company Number: 2012P1055094

PATIENT
  Age: 22 Year
  Sex: Male

DRUGS (2)
  1. FENTANYL [Suspect]
     Route: 048
  2. FENTANYL [Suspect]
     Dosage: 100 ug/hr; x1; BUCC

REACTIONS (8)
  - Incorrect route of drug administration [None]
  - Loss of consciousness [None]
  - Respiratory rate decreased [None]
  - Oxygen saturation decreased [None]
  - Overdose [None]
  - Drug screen positive [None]
  - Somnolence [None]
  - Wrong technique in drug usage process [None]
